FAERS Safety Report 5513217-X (Version None)
Quarter: 2007Q4

REPORT INFORMATION
  Report Type: 
  Country: None (occurrence: None)
  Receive Date: 20071108
  Receipt Date: 20071024
  Transmission Date: 20080405
  Serious: Yes (Hospitalization)
  Sender: FDA-Public Use
  Company Number: JPKYO-L-20070003

PATIENT
  Age: 62 Year
  Sex: Male

DRUGS (10)
  1. NAVELBINE [Suspect]
     Indication: PLEURAL MESOTHELIOMA
     Dosage: 30 MG QD;IV
     Route: 042
     Dates: start: 20050809, end: 20051018
  2. GEMZAR [Suspect]
     Indication: PLEURAL MESOTHELIOMA
     Dosage: 1300 MG QD; IV
     Route: 042
     Dates: start: 20050809, end: 20051018
  3. NASEA [Concomitant]
  4. OXYCONTIN [Concomitant]
  5. FLUTIDE [Concomitant]
  6. SEREVENT [Concomitant]
  7. THEOLONG [Concomitant]
  8. NOVAMIN [Concomitant]
  9. LOXONIN [Concomitant]
  10. CYTOTEC [Concomitant]

REACTIONS (3)
  - HYPOXIA [None]
  - INFECTION [None]
  - PNEUMONIA [None]
